FAERS Safety Report 9439322 (Version 3)
Quarter: 2013Q3

REPORT INFORMATION
  Report Type: Report from Study
  Country: KR (occurrence: KR)
  Receive Date: 20130804
  Receipt Date: 20130822
  Transmission Date: 20140515
  Serious: Yes (Hospitalization)
  Sender: FDA-Public Use
  Company Number: KR-ROCHE-1254157

PATIENT
  Age: 53 Year
  Sex: Male
  Weight: 62 kg

DRUGS (25)
  1. TRASTUZUMAB EMTANSINE [Suspect]
     Indication: GASTRIC CANCER
     Route: 042
     Dates: start: 20130719
  2. TANTUM [Concomitant]
     Indication: MUCOSAL INFLAMMATION
     Dosage: GARGLE
     Route: 065
     Dates: start: 20130719
  3. NEURONTIN (KOREA, REPUBLIC OF) [Concomitant]
     Indication: NEUROPATHY PERIPHERAL
     Route: 065
     Dates: start: 20130727
  4. MAGNESIUMOXID [Concomitant]
     Indication: CONSTIPATION
     Route: 065
     Dates: start: 20130727
  5. SODIUM BICARBONATE [Concomitant]
     Indication: MUCOSAL INFLAMMATION
     Route: 065
     Dates: start: 20130725
  6. CALCIUM CHLORIDE [Concomitant]
     Route: 065
     Dates: start: 20130725, end: 20130725
  7. CEFTRIAXONE [Concomitant]
     Indication: PYREXIA
     Route: 065
     Dates: start: 20130725, end: 20130801
  8. KLENZO [Concomitant]
     Indication: MUCOSAL INFLAMMATION
     Route: 065
     Dates: start: 20130725
  9. TYLENOL [Concomitant]
     Indication: PYREXIA
     Route: 065
     Dates: start: 20130725, end: 20130725
  10. CORTISOLU [Concomitant]
     Indication: ADRENAL INSUFFICIENCY
     Route: 065
     Dates: start: 20130726, end: 20130730
  11. CORTISOLU [Concomitant]
     Route: 065
     Dates: start: 20130731, end: 20130731
  12. NEXIUM [Concomitant]
     Indication: GASTRIC ULCER
     Route: 065
     Dates: start: 20130726, end: 20130729
  13. CYNACTEN [Concomitant]
     Indication: PREMEDICATION
     Route: 065
     Dates: start: 20130726, end: 20130726
  14. BUSCOPAN [Concomitant]
     Indication: PREMEDICATION
     Route: 065
     Dates: start: 20130726, end: 20130726
  15. LASIX [Concomitant]
     Indication: PREMEDICATION
     Route: 065
     Dates: start: 20130726, end: 20130726
  16. PHENIRAMINE [Concomitant]
     Indication: PREMEDICATION
     Route: 065
     Dates: start: 20130726, end: 20130726
  17. FURTMAN INJ. [Concomitant]
     Indication: FATIGUE
     Route: 065
     Dates: start: 20130726, end: 20130726
  18. DUPHALAC-EASY [Concomitant]
     Indication: CONSTIPATION
     Route: 065
     Dates: start: 20130729, end: 20130801
  19. LANSTON [Concomitant]
     Indication: GASTRIC ULCER
     Route: 065
     Dates: start: 20130729
  20. ALBUMIN [Concomitant]
     Indication: HYPOALBUMINAEMIA
     Route: 065
     Dates: start: 20130729, end: 20130729
  21. HEMONIA [Concomitant]
     Indication: ANAEMIA
     Route: 065
     Dates: start: 20130729
  22. CEFPODOXIME PROXETIL [Concomitant]
     Indication: PYREXIA
     Route: 065
     Dates: start: 20130731
  23. STILNOX CR [Concomitant]
     Indication: INSOMNIA
     Route: 065
     Dates: start: 20130731
  24. SOLONDO [Concomitant]
     Indication: ADRENAL INSUFFICIENCY
     Route: 065
     Dates: start: 20130801
  25. YAL [Concomitant]
     Indication: PREMEDICATION
     Route: 065
     Dates: start: 20130726, end: 20130726

REACTIONS (1)
  - Gastrointestinal haemorrhage [Recovered/Resolved]
